FAERS Safety Report 7935665-0 (Version None)
Quarter: 2011Q4

REPORT INFORMATION
  Report Type: 
  Country: None (occurrence: None)
  Receive Date: 20111121
  Receipt Date: 20111110
  Transmission Date: 20120403
  Serious: Yes (Other)
  Sender: FDA-Public Use
  Company Number: AUR-APL-2011-05334

PATIENT
  Age: 47 Year
  Sex: Female
  Weight: 73.92 kg

DRUGS (3)
  1. AMOXICILLIN [Suspect]
     Indication: EAR INFECTION
     Dosage: 1500 MG (500 MG, 3 IN 1 D), ORAL
     Route: 048
     Dates: start: 20110929
  2. LOSARTAN POTASSIUM [Concomitant]
  3. DYAZIDE [Concomitant]

REACTIONS (2)
  - HYPOAESTHESIA [None]
  - LETHARGY [None]
